FAERS Safety Report 12410085 (Version 1)
Quarter: 2016Q2

REPORT INFORMATION
  Report Type: Spontaneous
  Country: US (occurrence: None)
  Receive Date: 20160526
  Receipt Date: 20160526
  Transmission Date: 20160815
  Serious: Yes (Other)
  Sender: FDA-Public Use
  Company Number: None

PATIENT
  Age: 38 Year
  Sex: Male
  Weight: 77.11 kg

DRUGS (1)
  1. ICY HOT MEDICATED NO MESS APPLICATOR [Suspect]
     Active Substance: MENTHOL
     Indication: MYALGIA
     Dosage: APPLIED TO A SURFACE, USUALLY THE SKIN
     Dates: start: 20160525

REACTIONS (2)
  - Application site erythema [None]
  - Application site pain [None]

NARRATIVE: CASE EVENT DATE: 20160525
